FAERS Safety Report 6819071-8 (Version None)
Quarter: 2010Q3

REPORT INFORMATION
  Report Type: 
  Country: None (occurrence: None)
  Receive Date: 20100701
  Receipt Date: 20100619
  Transmission Date: 20110219
  Serious: Yes (Hospitalization, Other)
  Sender: FDA-Public Use
  Company Number: 2010AP001282

PATIENT
  Age: 84 Year
  Sex: Male

DRUGS (1)
  1. BUPROPION HYDROCHLORIDE [Suspect]
     Dosage: 100 MG, BID; 150 MG, BID; 75 MG;QD

REACTIONS (13)
  - AGITATION [None]
  - ATAXIA [None]
  - DELIRIUM [None]
  - DYSARTHRIA [None]
  - FALL [None]
  - HALLUCINATION, VISUAL [None]
  - MOTOR DYSFUNCTION [None]
  - MUSCULAR WEAKNESS [None]
  - MYOCLONUS [None]
  - PNEUMONIA [None]
  - RENAL FAILURE ACUTE [None]
  - TREMOR [None]
  - VERTIGO [None]
